FAERS Safety Report 8776140 (Version 2)
Quarter: 2012Q4

REPORT INFORMATION
  Report Type: 
  Country: JP (occurrence: JP)
  Receive Date: 20120910
  Receipt Date: 20120910
  Transmission Date: 20130627
  Serious: Yes (Hospitalization)
  Sender: FDA-Public Use
  Company Number: JP-GLAXOSMITHKLINE-B0762431A

PATIENT
  Age: 62 Year
  Sex: Male

DRUGS (9)
  1. ZEFIX [Suspect]
     Indication: HEPATIC CIRRHOSIS
     Dosage: 100MG Per day
     Route: 048
     Dates: start: 200101, end: 20111101
  2. ZEFIX [Suspect]
     Indication: HEPATIC CIRRHOSIS
     Dosage: 50MG Per day
     Route: 048
     Dates: start: 20111102
  3. HEPSERA [Suspect]
     Indication: HEPATIC CIRRHOSIS
     Dosage: 10MG Per day
     Route: 048
     Dates: start: 200605, end: 20111101
  4. HEPSERA [Suspect]
     Indication: HEPATIC CIRRHOSIS
     Dosage: 5MG Per day
     Route: 048
     Dates: start: 20111102
  5. LIVACT [Concomitant]
     Dosage: 2IUAX Twice per day
     Route: 048
     Dates: start: 200005
  6. URSO [Concomitant]
     Dosage: 200MG Twice per day
     Route: 048
     Dates: start: 200005
  7. TAKEPRON [Concomitant]
     Dosage: 15MG Per day
     Route: 048
     Dates: start: 200703, end: 201009
  8. FERROMIA [Concomitant]
     Dosage: 50MG Per day
     Route: 048
     Dates: start: 201003, end: 201009
  9. DIOVAN [Concomitant]
     Dosage: 80MG Per day
     Route: 048
     Dates: start: 201108

REACTIONS (9)
  - Large intestinal haemorrhage [Unknown]
  - Pancytopenia [Unknown]
  - Anaemia [Unknown]
  - Splenomegaly [Unknown]
  - Renal impairment [Not Recovered/Not Resolved]
  - Varices oesophageal [Unknown]
  - Angiodysplasia [Unknown]
  - Glomerular filtration rate decreased [Unknown]
  - Blood creatinine increased [Unknown]
